FAERS Safety Report 15228701 (Version 1)
Quarter: 2018Q3

REPORT INFORMATION
  Report Type: Spontaneous
  Country: AU (occurrence: AU)
  Receive Date: 20180801
  Receipt Date: 20180801
  Transmission Date: 20181010
  Serious: Yes (Other)
  Sender: FDA-Public Use
  Company Number: AU-TOLMAR, INC.-2018AU007628

PATIENT

DRUGS (7)
  1. DENOSUMAB [Concomitant]
     Active Substance: DENOSUMAB
     Dosage: 60 MG, EVERY SIX MONTHS
     Route: 058
     Dates: start: 201409
  2. ELIGARD [Suspect]
     Active Substance: LEUPROLIDE ACETATE
     Indication: PROSTATE CANCER
     Dosage: UNK
     Route: 065
     Dates: start: 201206
  3. DENOSUMAB [Concomitant]
     Active Substance: DENOSUMAB
     Dosage: 120 MG, MONTHLY
     Route: 058
     Dates: start: 201409
  4. PREDNISOLONE. [Concomitant]
     Active Substance: PREDNISOLONE
     Dosage: UNK
  5. ABIRATERONE [Concomitant]
     Active Substance: ABIRATERONE
     Dosage: UNK
  6. RISEDRONATE [Concomitant]
     Active Substance: RISEDRONATE SODIUM
  7. ZOLEDRONIC [Concomitant]
     Active Substance: ZOLEDRONIC ACID

REACTIONS (2)
  - Hormone-refractory prostate cancer [Unknown]
  - Metastases to bone [Unknown]
